FAERS Safety Report 13377272 (Version 1)
Quarter: 2017Q1

REPORT INFORMATION
  Report Type: Spontaneous
  Country: FR (occurrence: FR)
  Receive Date: 20170328
  Receipt Date: 20170328
  Transmission Date: 20170429
  Serious: Yes (Hospitalization)
  Sender: FDA-Public Use
  Company Number: FR-JNJFOC-20170321656

PATIENT
  Age: 94 Year
  Sex: Male

DRUGS (6)
  1. HALDOL [Suspect]
     Active Substance: HALOPERIDOL
     Indication: AGITATION
     Dosage: 2MG/ML
     Route: 048
     Dates: start: 20170226, end: 20170226
  2. IMOVANE [Suspect]
     Active Substance: ZOPICLONE
     Indication: AGITATION
     Route: 048
     Dates: start: 20170226, end: 20170226
  3. XARELTO [Concomitant]
     Active Substance: RIVAROXABAN
     Route: 065
  4. BISOCE [Concomitant]
     Active Substance: BISOPROLOL
     Route: 065
  5. MACROGOL [Concomitant]
     Active Substance: POLYETHYLENE GLYCOLS
     Route: 065
  6. INDAPAMIDE. [Concomitant]
     Active Substance: INDAPAMIDE
     Route: 065

REACTIONS (3)
  - Product use issue [Unknown]
  - Somnolence [Recovered/Resolved]
  - Off label use [Unknown]

NARRATIVE: CASE EVENT DATE: 20170227
